FAERS Safety Report 20351899 (Version 1)
Quarter: 2022Q1

REPORT INFORMATION
  Report Type: Spontaneous
  Country: US (occurrence: None)
  Receive Date: 20220118
  Receipt Date: 20220118
  Transmission Date: 20220423
  Serious: Yes (Hospitalization)
  Sender: FDA-Public Use
  Company Number: None

PATIENT
  Sex: Female

DRUGS (1)
  1. MAGNESIUM SULFATE [Suspect]
     Active Substance: MAGNESIUM SULFATE
     Indication: Labour induction
     Dosage: 2 G GRAM  PER HOUR;?
     Route: 041

REACTIONS (7)
  - Caesarean section [None]
  - Maternal exposure during pregnancy [None]
  - Foetal exposure during pregnancy [None]
  - Hypermagnesaemia [None]
  - Hyperkalaemia [None]
  - Laboratory test abnormal [None]
  - Premature labour [None]

NARRATIVE: CASE EVENT DATE: 20220109
